FAERS Safety Report 9250496 (Version 1)
Quarter: 2013Q1

REPORT INFORMATION
  Report Type: Spontaneous
  Country: US (occurrence: None)
  Receive Date: 20130305
  Receipt Date: 20130305
  Transmission Date: 20140127
  Serious: Yes (Hospitalization)
  Sender: FDA-Public Use
  Company Number: 163-21880-12042761

PATIENT
  Age: 66 Year
  Sex: Female

DRUGS (9)
  1. REVLIMID [Suspect]
     Indication: PLASMA CELL MYELOMA
     Dosage: 10 MG, 21, PO
     Route: 048
     Dates: start: 20120329
  2. ACYCLOVIR (ACICLOVIR) (ACICLOVIR) [Concomitant]
  3. ALPRAZOLAM (ALPRAZOLAM) [Concomitant]
  4. AMLODIPINE BESY-BENAZEPRIL HCL (AMLODIPINE BESYLATE W/ BENAZEPRIL HYDROCHLOR.) [Concomitant]
  5. AZITHROMYCIN (AZITHROMYCIN) [Concomitant]
  6. COUMADIN (WARFARIN SODIUM) [Concomitant]
  7. CYCLOBENZAPRINE HCL (CYCLOBENZAPRINE HYDROCHLORIDE) [Concomitant]
  8. GABAPENTIN (GABAPENTIN) [Concomitant]
  9. HYDROCODONE-ACETAMINOPHEN (VICODIN) [Concomitant]

REACTIONS (1)
  - Pulmonary embolism [None]
